FAERS Safety Report 8958238 (Version 1)
Quarter: 2012Q4

REPORT INFORMATION
  Report Type: 
  Country: US (occurrence: US)
  Receive Date: 20121211
  Receipt Date: 20121211
  Transmission Date: 20130627
  Serious: No
  Sender: FDA-Public Use
  Company Number: US-ASTRAZENECA-2012SE53251

PATIENT
  Age: 69 Year
  Sex: Male

DRUGS (16)
  1. LISINOPRIL [Suspect]
     Route: 048
  2. NEXIUM [Suspect]
     Route: 048
  3. NEXIUM [Suspect]
     Route: 048
  4. PRILOSEC [Suspect]
     Route: 048
  5. ASOCOL [Concomitant]
     Dosage: 400 MG, 2, 3 TIMES A DAY
  6. XANAX [Concomitant]
  7. XANAX [Concomitant]
  8. LIPITOR [Concomitant]
  9. PROZAC [Concomitant]
  10. COATED ASPIRIN [Concomitant]
  11. VITAMIN D 50000 [Concomitant]
     Dosage: 1 ONCE A WEEK
     Route: 048
  12. PREDNISONE [Concomitant]
  13. DALIRESP NEBULIZER [Concomitant]
  14. DUONEP [Concomitant]
     Dosage: 4-6 TIMES A DAY
  15. PULMICORT [Concomitant]
     Dosage: 2 TIMES A DAY
  16. OXYGEN [Concomitant]
     Dosage: DAY AND NIGHT 3 LITERS

REACTIONS (7)
  - Oedema mouth [Unknown]
  - Blood pressure decreased [Unknown]
  - Swelling face [Unknown]
  - Drug hypersensitivity [Unknown]
  - Intentional drug misuse [Unknown]
  - Drug dose omission [Unknown]
  - Drug ineffective [Unknown]
